FAERS Safety Report 25272202 (Version 2)
Quarter: 2025Q3

REPORT INFORMATION
  Report Type: Report from Study
  Country: CA (occurrence: CA)
  Receive Date: 20250506
  Receipt Date: 20250710
  Transmission Date: 20251020
  Serious: Yes (Life-Threatening)
  Sender: ABBVIE
  Company Number: CA-ABBVIE-6268029

PATIENT
  Age: 47 Year
  Sex: Female

DRUGS (2)
  1. SKYRIZI [Suspect]
     Active Substance: RISANKIZUMAB-RZAA
     Indication: Psoriasis
     Route: 058
     Dates: start: 20240604, end: 20250211
  2. SKYRIZI [Suspect]
     Active Substance: RISANKIZUMAB-RZAA
     Route: 058
     Dates: start: 2025, end: 202504

REACTIONS (2)
  - Metastases to central nervous system [Not Recovered/Not Resolved]
  - Metastases to spine [Not Recovered/Not Resolved]

NARRATIVE: CASE EVENT DATE: 20250328
